FAERS Safety Report 6939049-3 (Version None)
Quarter: 2010Q3

REPORT INFORMATION
  Report Type: 
  Country: None (occurrence: None)
  Receive Date: 20100824
  Receipt Date: 20100813
  Transmission Date: 20110219
  Serious: Yes (Hospitalization)
  Sender: FDA-Public Use
  Company Number: US-MERCK-1008USA01596

PATIENT
  Age: 56 Year
  Sex: Female

DRUGS (5)
  1. PRINZIDE [Suspect]
     Route: 048
  2. LOVENOX [Suspect]
     Indication: THROMBOSIS PROPHYLAXIS
     Route: 065
     Dates: start: 20100723
  3. WARFARIN [Concomitant]
     Route: 065
     Dates: start: 20100723, end: 20100802
  4. DILTIAZEM HYDROCHLORIDE [Concomitant]
     Route: 065
     Dates: start: 20100723
  5. DIGOXIN [Concomitant]
     Route: 065
     Dates: start: 20100723

REACTIONS (6)
  - ATRIAL FIBRILLATION [None]
  - CONTUSION [None]
  - FATIGUE [None]
  - GASTROINTESTINAL DISORDER [None]
  - HEADACHE [None]
  - INJECTION SITE INDURATION [None]
